FAERS Safety Report 9876919 (Version 1)
Quarter: 2014Q1

REPORT INFORMATION
  Report Type: Spontaneous
  Country: JP (occurrence: None)
  Receive Date: 20140204
  Receipt Date: 20140204
  Transmission Date: 20141002
  Serious: Yes (Other)
  Sender: FDA-Public Use
  Company Number: ABR_01473_2014

PATIENT
  Age: 46 Year
  Sex: Male

DRUGS (1)
  1. GLIADEL [Suspect]
     Indication: PRODUCT USED FOR UNKNOWN INDICATION
     Dosage: DF INTRACEREBRAL
     Dates: start: 20140120, end: 20140120

REACTIONS (2)
  - Brain oedema [None]
  - Aphasia [None]
